FAERS Safety Report 9160711 (Version 2)
Quarter: 2013Q2

REPORT INFORMATION
  Report Type: Spontaneous
  Country: CA (occurrence: CA)
  Receive Date: 20130313
  Receipt Date: 20130502
  Transmission Date: 20140414
  Serious: Yes (Other)
  Sender: FDA-Public Use
  Company Number: CA-ABBOTT-13X-028-1059350-00

PATIENT
  Age: 16 Year
  Sex: Female

DRUGS (55)
  1. LIPIDIL [Suspect]
     Indication: BLOOD TRIGLYCERIDES INCREASED
     Route: 048
     Dates: start: 20111013, end: 20120202
  2. LIPIDIL [Suspect]
     Route: 048
     Dates: start: 20110602, end: 20110618
  3. LIPIDIL [Suspect]
     Route: 048
  4. ACETAMINOPHEN [Concomitant]
     Indication: PRODUCT USED FOR UNKNOWN INDICATION
     Dosage: Q4-6H PRN
     Route: 048
     Dates: start: 20110202, end: 20120814
  5. ACYCLOVIR [Concomitant]
     Indication: HERPES VIRUS INFECTION
     Route: 042
     Dates: start: 20110225, end: 20110301
  6. ACYCLOVIR [Concomitant]
     Indication: SECRETION DISCHARGE
  7. ALLOPURINOL [Concomitant]
     Indication: CHEMOTHERAPY
     Route: 048
     Dates: start: 20110202, end: 20110215
  8. ESCHERICHIA COLI [Concomitant]
     Indication: CHEMOTHERAPY
     Dosage: 42000-47500 IU
     Route: 030
     Dates: start: 20110401, end: 20120106
  9. CLOXACILLIN [Concomitant]
     Indication: STAPHYLOCOCCAL SEPSIS
     Route: 042
     Dates: start: 20110223, end: 20110308
  10. CODEINE [Concomitant]
     Indication: PRODUCT USED FOR UNKNOWN INDICATION
     Dosage: 10-60MG, Q4-6H PRN
     Route: 048
     Dates: start: 20110219, end: 20120814
  11. CYTARABINE [Concomitant]
     Indication: CHEMOTHERAPY
     Route: 037
     Dates: start: 20110207, end: 20110207
  12. DEXAMETHASONE [Concomitant]
     Indication: CHEMOTHERAPY
     Dosage: 15-17MG, DURATION TEXT: 5 DAYS OF 21
     Route: 048
     Dates: start: 20110331, end: 20120109
  13. DEXAMETHASONE [Concomitant]
     Dosage: 5.5-6MG, DURATION TEXT: 5 DAYS OUT OF 21
     Route: 048
     Dates: start: 20120126, end: 20120807
  14. DIMENHYDRINATE [Concomitant]
     Indication: PRODUCT USED FOR UNKNOWN INDICATION
     Dosage: Q4-6H PRN
     Dates: start: 20110207, end: 20110721
  15. DOCUSATE [Concomitant]
     Indication: PRODUCT USED FOR UNKNOWN INDICATION
     Route: 048
     Dates: start: 20110207, end: 20120814
  16. DOXORUBICINE [Concomitant]
     Indication: CHEMOTHERAPY
     Dosage: 50-60MG
     Route: 042
     Dates: start: 20110210, end: 20110901
  17. ETHINYLESTRADIOL W/LEVONORGESTREL [Concomitant]
     Indication: PRODUCT USED FOR UNKNOWN INDICATION
  18. FISH OIL [Concomitant]
     Indication: BLOOD TRIGLYCERIDES INCREASED
     Dosage: 3 CAPSULES OF 300MG/150MG (EPA/DHA)
     Route: 048
     Dates: start: 20110602, end: 20120202
  19. GRANISETRON [Concomitant]
     Indication: PRODUCT USED FOR UNKNOWN INDICATION
     Dosage: 1600-2000MCG, DURATION TEXT: 2 DOSES TOTAL
     Route: 042
     Dates: start: 20120330, end: 20120531
  20. HYDROCORTISONE [Concomitant]
     Indication: PRODUCT USED FOR UNKNOWN INDICATION
  21. L-ASPARAGINASE [Concomitant]
     Indication: CHEMOTHERAPY
     Route: 042
     Dates: start: 20110213, end: 20110213
  22. LEUCOVORIN [Concomitant]
     Indication: PRODUCT USED FOR UNKNOWN INDICATION
     Route: 042
     Dates: start: 20110312, end: 20110312
  23. LEUCOVORIN [Concomitant]
     Route: 042
     Dates: start: 20110313, end: 20110315
  24. MEDROXYPROGESTERONE [Concomitant]
     Indication: PRODUCT USED FOR UNKNOWN INDICATION
     Route: 048
     Dates: start: 20110207, end: 20110814
  25. MERCAPTOPURINE [Concomitant]
     Indication: CHEMOTHERAPY
     Dosage: 81-137.5MG, DURATION TEXT: 14 DAYS OUT OF 21
     Route: 048
     Dates: start: 20110310, end: 20120815
  26. METHOTREXATE [Concomitant]
     Indication: CHEMOTHERAPY
     Dosage: 67 MG
     Route: 042
     Dates: start: 20110212, end: 20110212
  27. METHOTREXATE [Concomitant]
     Route: 042
     Dates: start: 20110311, end: 20110311
  28. METHOTREXATE [Concomitant]
     Dosage: 45-75MG, Q1-2WEEKS
     Route: 030
     Dates: start: 20110922, end: 20120809
  29. METHOTREXATE [Concomitant]
     Route: 037
     Dates: start: 20110310, end: 20110310
  30. METHYLPREDNISOLONE [Concomitant]
     Indication: CHEMOTHERAPY
     Route: 042
     Dates: start: 20110207, end: 20110228
  31. METOCLOPRAMIDE [Concomitant]
     Indication: PRODUCT USED FOR UNKNOWN INDICATION
     Dosage: Q6H PRN
     Route: 042
     Dates: start: 20110310, end: 20120814
  32. MORPHINE [Concomitant]
     Indication: PRODUCT USED FOR UNKNOWN INDICATION
     Dosage: 2-5 MG, Q1-3H PRN
     Route: 042
     Dates: start: 20110224, end: 20120814
  33. NIFEDIPINE [Concomitant]
     Indication: SECONDARY HYPERTENSION
     Dosage: 2-5MG, Q2-6H PRN
     Route: 048
     Dates: start: 20110210, end: 20110217
  34. NOVORAPID [Concomitant]
     Indication: PRODUCT USED FOR UNKNOWN INDICATION
  35. NYSTATIN [Concomitant]
     Indication: PRODUCT USED FOR UNKNOWN INDICATION
     Dosage: 2 DOSES
     Route: 048
     Dates: start: 20110202, end: 20110404
  36. ONDANSETRON [Concomitant]
     Indication: PRODUCT USED FOR UNKNOWN INDICATION
     Route: 042
     Dates: start: 20100210, end: 20120105
  37. PENTAMIDINE [Concomitant]
     Indication: PRODUCT USED FOR UNKNOWN INDICATION
     Dosage: 15 DOSES
     Route: 055
     Dates: start: 20110209, end: 20120419
  38. PREDNISONE [Concomitant]
     Indication: CHEMOTHERAPY
     Route: 048
     Dates: start: 20110212, end: 20110310
  39. PROGESTERONE [Concomitant]
     Indication: PRODUCT USED FOR UNKNOWN INDICATION
     Route: 048
     Dates: start: 20110929, end: 20111005
  40. RANITIDINE [Concomitant]
     Indication: PROPHYLAXIS
     Dosage: 50-150MG, Q8H-BID
     Dates: start: 20110207, end: 20120814
  41. RANITIDINE [Concomitant]
     Indication: ADVERSE EVENT
  42. CLAVULANIC ACID [Concomitant]
     Indication: PRODUCT USED FOR UNKNOWN INDICATION
     Route: 042
  43. TOBRAMYCIN [Concomitant]
     Indication: PRODUCT USED FOR UNKNOWN INDICATION
     Dates: start: 20110215, end: 20110308
  44. TRANEXAMIC ACID [Concomitant]
     Indication: MENORRHAGIA
     Dosage: 500-1500 MG
     Route: 048
     Dates: start: 20110129, end: 20110213
  45. TRIMETHOPRIM SULFAMETHOXAZOLE [Concomitant]
     Indication: PRODUCT USED FOR UNKNOWN INDICATION
     Dosage: 140-160MG+700-800MG, 2 TREATMENTS TOTAL
     Route: 048
  46. VANCOMYCIN [Concomitant]
     Indication: FEBRILE NEUTROPENIA
     Dosage: 750-1000MG
     Route: 042
     Dates: start: 20110221, end: 20110227
  47. VINCRISTINE [Concomitant]
     Indication: CHEMOTHERAPY
     Route: 042
     Dates: start: 20110210, end: 20110303
  48. VINCRISTINE [Concomitant]
     Route: 042
     Dates: start: 20110310, end: 20120802
  49. ZINECARD [Concomitant]
     Indication: PRODUCT USED FOR UNKNOWN INDICATION
     Route: 042
  50. DEXRAZOXANE [Concomitant]
     Indication: PRODUCT USED FOR UNKNOWN INDICATION
     Dosage: 500-600MG
     Route: 042
     Dates: start: 20110210, end: 20110901
  51. ETHINYLESTRADIOL/NORGESTREL [Concomitant]
     Indication: MENORRHAGIA
     Dosage: 0.05MG+0.25MG
     Route: 048
     Dates: start: 20110109, end: 20110207
  52. IRON SULFATE [Concomitant]
     Indication: PRODUCT USED FOR UNKNOWN INDICATION
     Route: 048
     Dates: start: 20110130, end: 20110207
  53. INSULIN [Concomitant]
     Indication: DIABETES MELLITUS
     Route: 058
     Dates: start: 20110215, end: 20110308
  54. METHOTREXATE W/CYTARABINE/HYDROCORTISONE [Concomitant]
     Indication: CHEMOTHERAPY
     Dosage: 12+40+15MG
     Route: 037
     Dates: start: 20110224, end: 20120531
  55. CLAVULANIC ACID W/TICARCILLIN [Concomitant]
     Indication: FEBRILE NEUTROPENIA
     Dosage: 4000MG+133MG
     Route: 042
     Dates: start: 20110215, end: 20110308

REACTIONS (1)
  - Cholestasis [Recovered/Resolved]
